FAERS Safety Report 5345327-4 (Version None)
Quarter: 2007Q2

REPORT INFORMATION
  Report Type: 
  Country: None (occurrence: None)
  Receive Date: 20070601
  Receipt Date: 20070601
  Transmission Date: 20071010
  Serious: Yes (Other)
  Sender: FDA-Public Use
  Company Number: None

PATIENT
  Sex: Male

DRUGS (1)
  1. DIBUCAINE OINTMENT USP, 1% [Suspect]
     Dosage: TOPICAL
     Route: 061
     Dates: start: 20070326

REACTIONS (1)
  - PRURITUS [None]
